FAERS Safety Report 19967148 (Version 4)
Quarter: 2022Q1

REPORT INFORMATION
  Report Type: Report from Study
  Country: US (occurrence: US)
  Receive Date: 20211019
  Receipt Date: 20220309
  Transmission Date: 20220423
  Serious: No
  Sender: FDA-Public Use
  Company Number: NVSC2021US237421

PATIENT
  Age: 42 Year
  Sex: Female
  Weight: 115.67 kg

DRUGS (2)
  1. KESIMPTA [Suspect]
     Active Substance: OFATUMUMAB
     Indication: Product used for unknown indication
     Dosage: 20 MG, QOD
     Route: 058
     Dates: start: 20210917
  2. KESIMPTA [Suspect]
     Active Substance: OFATUMUMAB
     Dosage: 20 MG, QMO
     Route: 058
     Dates: start: 20210917

REACTIONS (7)
  - Muscle spasms [Recovered/Resolved]
  - COVID-19 [Unknown]
  - Pruritus [Recovered/Resolved]
  - Pyrexia [Unknown]
  - Asthenia [Unknown]
  - Chills [Recovered/Resolved]
  - Pruritus [Unknown]

NARRATIVE: CASE EVENT DATE: 20210917
